FAERS Safety Report 17098000 (Version 1)
Quarter: 2019Q4

REPORT INFORMATION
  Report Type: Spontaneous
  Country: US (occurrence: US)
  Receive Date: 20191105
  Receipt Date: 20191105
  Transmission Date: 20200122
  Serious: No
  Sender: FDA-Public Use
  Company Number: None

PATIENT
  Sex: Female

DRUGS (3)
  1. FORTEO [Suspect]
     Active Substance: TERIPARATIDE
     Indication: PAIN IN EXTREMITY
     Dosage: ?          OTHER STRENGTH:250MCG/ML;?
     Route: 058
     Dates: start: 201905
  2. FORTEO [Suspect]
     Active Substance: TERIPARATIDE
     Indication: DECREASED APPETITE
     Dosage: ?          OTHER STRENGTH:250MCG/ML;?
     Route: 058
     Dates: start: 201905
  3. FORTEO [Suspect]
     Active Substance: TERIPARATIDE
     Indication: PARAESTHESIA
     Dosage: ?          OTHER STRENGTH:250MCG/ML;?
     Route: 058
     Dates: start: 201905

REACTIONS (5)
  - Oral mucosal blistering [None]
  - Nausea [None]
  - Pain in extremity [None]
  - Paraesthesia [None]
  - Decreased appetite [None]
